FAERS Safety Report 9279616 (Version 3)
Quarter: 2013Q3

REPORT INFORMATION
  Report Type: Spontaneous
  Country: US (occurrence: US)
  Receive Date: 20130509
  Receipt Date: 20130920
  Transmission Date: 20140515
  Serious: No
  Sender: FDA-Public Use
  Company Number: US-009507513-1305USA003408

PATIENT
  Sex: Male

DRUGS (3)
  1. REBETOL [Suspect]
     Indication: HEPATITIS C
     Dosage: UNK
     Route: 048
     Dates: start: 20130329, end: 20130823
  2. VICTRELIS [Suspect]
     Indication: HEPATITIS C
     Dosage: UNK
     Route: 048
     Dates: start: 20130503, end: 20130823
  3. PEGASYS [Suspect]
     Indication: HEPATITIS C
     Dosage: UNK
     Dates: start: 20130329, end: 20130823

REACTIONS (7)
  - Laboratory test abnormal [Unknown]
  - Pruritus [Unknown]
  - Headache [Recovering/Resolving]
  - Dysgeusia [Unknown]
  - Rash [Unknown]
  - Drug ineffective [Unknown]
  - Therapeutic response decreased [Unknown]
